FAERS Safety Report 15101687 (Version 3)
Quarter: 2019Q1

REPORT INFORMATION
  Report Type: Spontaneous
  Country: US (occurrence: US)
  Receive Date: 20180703
  Receipt Date: 20190307
  Transmission Date: 20190417
  Serious: Yes (Other)
  Sender: FDA-Public Use
  Company Number: US-009507513-1806USA012046

PATIENT
  Age: 23 Year
  Sex: Female
  Weight: 79.37 kg

DRUGS (1)
  1. NEXPLANON [Suspect]
     Active Substance: ETONOGESTREL
     Indication: CONTRACEPTION
     Dosage: 1 ROD EVERY ^FOUR^ YEARS, INSERTED INTO UPPER RIGHT ARM
     Route: 059
     Dates: start: 201401, end: 20180803

REACTIONS (13)
  - Paraesthesia [Unknown]
  - Pain [Unknown]
  - Incorrect product administration duration [Unknown]
  - Weight increased [Unknown]
  - Depression [Unknown]
  - Adverse event [Unknown]
  - Hypoaesthesia [Unknown]
  - Complication associated with device [Recovered/Resolved]
  - Burning sensation [Unknown]
  - Anxiety [Unknown]
  - Device deployment issue [Recovered/Resolved]
  - General anaesthesia [Recovered/Resolved]
  - Complication of device removal [Recovered/Resolved]

NARRATIVE: CASE EVENT DATE: 2014
